FAERS Safety Report 8208212-6 (Version None)
Quarter: 2012Q1

REPORT INFORMATION
  Report Type: 
  Country: None (occurrence: None)
  Receive Date: 20120314
  Receipt Date: 20120309
  Transmission Date: 20120608
  Serious: Yes (Death, Hospitalization, Other)
  Sender: FDA-Public Use
  Company Number: PHHY2011NL109687

PATIENT
  Sex: Male

DRUGS (2)
  1. ZOMETA [Suspect]
     Indication: RENAL CELL CARCINOMA
     Dosage: 4 MG/5 ML, 1X PER 28 DAYS
  2. ZOMETA [Suspect]
     Dosage: 4 MG/5 ML, 1X PER 28 DAYS
     Dates: start: 20111123

REACTIONS (4)
  - DEATH [None]
  - PARALYSIS [None]
  - TERMINAL STATE [None]
  - GENERAL PHYSICAL HEALTH DETERIORATION [None]
